FAERS Safety Report 21867556 (Version 1)
Quarter: 2023Q1

REPORT INFORMATION
  Report Type: Spontaneous
  Country: US (occurrence: US)
  Receive Date: 20230116
  Receipt Date: 20230116
  Transmission Date: 20230417
  Serious: Yes (Death, Other)
  Sender: FDA-Public Use
  Company Number: US-ORGANON-O2301USA001137

PATIENT
  Age: 39 Year
  Sex: Male

DRUGS (12)
  1. MAXALT [Suspect]
     Active Substance: RIZATRIPTAN BENZOATE
     Dosage: INGESTION (+) PARENTERAL (INGST + PAR)
  2. AMITRIPTYLINE [Suspect]
     Active Substance: AMITRIPTYLINE
     Dosage: INGESTION (+) PARENTERAL (INGST + PAR)
  3. OXCARBAZEPINE [Suspect]
     Active Substance: OXCARBAZEPINE
     Dosage: INGESTION (+) PARENTERAL (INGST + PAR)
  4. DULOXETINE [Suspect]
     Active Substance: DULOXETINE
     Dosage: INGESTION (+) PARENTERAL (INGST + PAR)
  5. PROPRANOLOL [Suspect]
     Active Substance: PROPRANOLOL HYDROCHLORIDE
     Dosage: INGESTION (+) PARENTERAL (INGST + PAR)
  6. BUSPIRONE [Suspect]
     Active Substance: BUSPIRONE HYDROCHLORIDE
     Dosage: INGESTION (+) PARENTERAL (INGST + PAR)
  7. GABAPENTIN [Suspect]
     Active Substance: GABAPENTIN
     Dosage: INGESTION (+) PARENTERAL (INGST + PAR)
  8. LURASIDONE [Suspect]
     Active Substance: LURASIDONE
     Dosage: INGESTION (+) PARENTERAL (INGST + PAR)
  9. LINACLOTIDE [Suspect]
     Active Substance: LINACLOTIDE
     Dosage: INGESTION (+) PARENTERAL (INGST + PAR)
  10. DICLOFENAC [Suspect]
     Active Substance: DICLOFENAC
     Dosage: INGESTION (+) PARENTERAL (INGST + PAR)
  11. METFORMIN [Suspect]
     Active Substance: METFORMIN HYDROCHLORIDE
     Dosage: INGESTION (+) PARENTERAL (INGST + PAR)
  12. INSULIN NOS [Suspect]
     Active Substance: INSULIN NOS
     Dosage: INGESTION (+) PARENTERAL (INGST + PAR)

REACTIONS (1)
  - Suspected suicide [Fatal]
